FAERS Safety Report 15670021 (Version 1)
Quarter: 2018Q4

REPORT INFORMATION
  Report Type: Spontaneous
  Country: US (occurrence: US)
  Receive Date: 20181129
  Receipt Date: 20181129
  Transmission Date: 20190205
  Serious: Yes (Death, Other)
  Sender: FDA-Public Use
  Company Number: US-TEVA-2018-US-980540

PATIENT
  Age: 26 Year
  Sex: Male

DRUGS (1)
  1. FENTANYL ACTAVIS VR [Suspect]
     Active Substance: FENTANYL
     Indication: DRUG ABUSE
     Dosage: TRANSDERMAL SYSTEM 100MCG/H PATCHES (CONTAINS 10MG OF FENTANYL GEL)
     Route: 055

REACTIONS (3)
  - Toxicity to various agents [Fatal]
  - Accidental overdose [Unknown]
  - Drug abuse [Unknown]
